FAERS Safety Report 4858814-X (Version None)
Quarter: 2005Q4

REPORT INFORMATION
  Report Type: 
  Country: None (occurrence: None)
  Receive Date: 20051215
  Receipt Date: 20051208
  Transmission Date: 20060501
  Serious: Yes (Other)
  Sender: FDA-Public Use
  Company Number: USA-2005-0021929

PATIENT
  Age: 72 Year
  Sex: Female

DRUGS (2)
  1. CEFDITOREN PIVOXIL (SIMILAR TO NDA-21222 (CEFDITOREN PIVOXIL) [Suspect]
     Indication: BRONCHIECTASIS
     Dosage: 800 MG, DAILY; ORAL
     Route: 048
     Dates: start: 20051005, end: 20051010
  2. SERETIDE (SALMETEROL, FLUTICASONE, PROPIONATE) [Concomitant]

REACTIONS (1)
  - ATRIAL FIBRILLATION [None]
